FAERS Safety Report 16017892 (Version 1)
Quarter: 2019Q1

REPORT INFORMATION
  Report Type: Spontaneous
  Country: US (occurrence: US)
  Receive Date: 20190228
  Receipt Date: 20190228
  Transmission Date: 20190418
  Serious: No
  Sender: FDA-Public Use
  Company Number: US-ABBVIE-18S-163-2492953-00

PATIENT
  Sex: Male

DRUGS (1)
  1. ANDROGEL [Suspect]
     Active Substance: TESTOSTERONE
     Indication: PRODUCT USED FOR UNKNOWN INDICATION
     Route: 061

REACTIONS (4)
  - Skin burning sensation [Not Recovered/Not Resolved]
  - Poor quality sleep [Not Recovered/Not Resolved]
  - Asthenia [Not Recovered/Not Resolved]
  - Nausea [Not Recovered/Not Resolved]
